FAERS Safety Report 15999464 (Version 1)
Quarter: 2019Q1

REPORT INFORMATION
  Report Type: Spontaneous
  Country: US (occurrence: US)
  Receive Date: 20190222
  Receipt Date: 20190222
  Transmission Date: 20190418
  Serious: No
  Sender: FDA-Public Use
  Company Number: None

PATIENT
  Sex: Female

DRUGS (1)
  1. MEXILETINE [Suspect]
     Active Substance: MEXILETINE
     Indication: ARRHYTHMIA
     Dates: start: 20181122, end: 20190222

REACTIONS (4)
  - Nausea [None]
  - Drug screen false positive [None]
  - Flatulence [None]
  - Dyspepsia [None]

NARRATIVE: CASE EVENT DATE: 20181122
